FAERS Safety Report 17097273 (Version 1)
Quarter: 2019Q4

REPORT INFORMATION
  Report Type: Spontaneous
  Country: US (occurrence: US)
  Receive Date: 20191105
  Receipt Date: 20191105
  Transmission Date: 20200122
  Serious: Yes (Hospitalization)
  Sender: FDA-Public Use
  Company Number: None

PATIENT
  Age: 60 Year
  Sex: Male

DRUGS (1)
  1. CAPECITABINE. [Suspect]
     Active Substance: CAPECITABINE
     Indication: RECTAL CANCER
     Dosage: ?          OTHER FREQUENCY:4 TABS 2XDAILY;?
     Route: 048
     Dates: start: 20190823, end: 20190925

REACTIONS (4)
  - Diarrhoea [None]
  - Blood potassium decreased [None]
  - Abdominal pain upper [None]
  - Blood pressure decreased [None]

NARRATIVE: CASE EVENT DATE: 20190925
